FAERS Safety Report 6733912-4 (Version None)
Quarter: 2010Q2

REPORT INFORMATION
  Report Type: 
  Country: None (occurrence: None)
  Receive Date: 20100520
  Receipt Date: 20100517
  Transmission Date: 20101027
  Serious: Yes (Hospitalization)
  Sender: FDA-Public Use
  Company Number: FR-ROCHE-703578

PATIENT
  Sex: Female

DRUGS (6)
  1. RIVOTRIL [Suspect]
     Indication: POST HERPETIC NEURALGIA
     Route: 048
     Dates: start: 20070101
  2. RIVOTRIL [Suspect]
     Dosage: WEANING OF CLONAZEPAM
     Route: 048
  3. RIVOTRIL [Suspect]
     Dosage: FORM: DROPS
     Route: 048
     Dates: end: 20100125
  4. LYRICA [Suspect]
     Indication: POST HERPETIC NEURALGIA
     Route: 048
     Dates: start: 20091001
  5. LYRICA [Suspect]
     Dosage: PROGRESSIVELY INCREASED
     Route: 048
     Dates: end: 20100125
  6. IRBESARTAN [Concomitant]
     Indication: HYPERTENSION
     Route: 048
     Dates: start: 20070101

REACTIONS (4)
  - ABNORMAL BEHAVIOUR [None]
  - AMNESTIC DISORDER [None]
  - COGNITIVE DISORDER [None]
  - DISORIENTATION [None]
